FAERS Safety Report 6416155-3 (Version None)
Quarter: 2009Q4

REPORT INFORMATION
  Report Type: 
  Country: None (occurrence: None)
  Receive Date: 20091027
  Receipt Date: 20091023
  Transmission Date: 20100525
  Serious: Yes (Hospitalization)
  Sender: FDA-Public Use
  Company Number: US-BRISTOL-MYERS SQUIBB COMPANY-14830012

PATIENT
  Age: 81 Year
  Sex: Male

DRUGS (8)
  1. METFORMIN HCL [Suspect]
     Indication: DIABETES MELLITUS
     Route: 048
     Dates: start: 20040101, end: 20090622
  2. RANIBIZUMAB [Concomitant]
     Indication: MACULAR DEGENERATION
     Dosage: ROUTE: INTRAVITREAL VGFT 0.5MG OR 0.2MG OR RANIBIZUMAB 0.5MG Q4WKS LAST DOSE:11JUN09
     Route: 031
     Dates: start: 20090316
  3. HUMALOG [Concomitant]
     Indication: DIABETES MELLITUS
     Dosage: 1 DF=8 UNITS 2005-ONG:8U (BID) 2005-ONG:5U (QD)
     Route: 058
     Dates: start: 20050101
  4. LANTUS [Concomitant]
     Indication: DIABETES MELLITUS
     Route: 058
     Dates: start: 20050101
  5. FLOMAX [Concomitant]
     Indication: PROSTATIC DISORDER
     Route: 048
     Dates: start: 20070101
  6. COREG [Concomitant]
     Indication: CARDIOVASCULAR EVENT PROPHYLAXIS
     Route: 048
     Dates: start: 20050101
  7. ASPIRIN [Concomitant]
     Indication: CARDIOVASCULAR EVENT PROPHYLAXIS
     Route: 048
     Dates: start: 20050101
  8. CASODEX [Concomitant]
     Indication: PROSTATIC DISORDER
     Route: 048
     Dates: start: 20070101

REACTIONS (1)
  - SHOCK HYPOGLYCAEMIC [None]
